FAERS Safety Report 4316374-6 (Version None)
Quarter: 2004Q1

REPORT INFORMATION
  Report Type: 
  Country: None (occurrence: None)
  Receive Date: 20040312
  Receipt Date: 20040312
  Transmission Date: 20041129
  Serious: Yes (Death, Life-Threatening, Hospitalization)
  Sender: FDA-Public Use
  Company Number: None

PATIENT
  Age: 74 Year
  Sex: Female
  Weight: 59.4212 kg

DRUGS (2)
  1. ZYVOX [Suspect]
     Indication: LOCALISED INFECTION
     Dosage: 600 PO BID
     Route: 048
     Dates: start: 20040111, end: 20040301
  2. ZYVOX [Suspect]
     Indication: STAPHYLOCOCCAL INFECTION
     Dosage: 600 PO BID
     Route: 048
     Dates: start: 20040111, end: 20040301

REACTIONS (21)
  - ASTHENIA [None]
  - BRADYCARDIA [None]
  - CORONARY ARTERY DISEASE [None]
  - DECREASED APPETITE [None]
  - DEHYDRATION [None]
  - DEPRESSED LEVEL OF CONSCIOUSNESS [None]
  - DIARRHOEA [None]
  - GENERAL PHYSICAL HEALTH DETERIORATION [None]
  - HAEMOGLOBIN DECREASED [None]
  - HEPATIC CIRRHOSIS [None]
  - HYPOTENSION [None]
  - HYPOXIA [None]
  - LACTIC ACIDOSIS [None]
  - METABOLIC ACIDOSIS [None]
  - MULTI-ORGAN FAILURE [None]
  - MYELODYSPLASTIC SYNDROME [None]
  - NAUSEA [None]
  - PCO2 DECREASED [None]
  - PULMONARY OEDEMA [None]
  - RENAL IMPAIRMENT [None]
  - THROMBOCYTOPENIA [None]
